FAERS Safety Report 12191180 (Version 2)
Quarter: 2016Q2

REPORT INFORMATION
  Report Type: Report from Study
  Country: CO (occurrence: CO)
  Receive Date: 20160318
  Receipt Date: 20160411
  Transmission Date: 20160815
  Serious: Yes (Hospitalization)
  Sender: FDA-Public Use
  Company Number: PHHY2015CO141702

PATIENT
  Age: 64 Year
  Sex: Female

DRUGS (3)
  1. AFINITOR [Suspect]
     Active Substance: EVEROLIMUS
     Indication: BREAST CANCER
     Dosage: 10 MG, UNK
     Route: 048
     Dates: start: 20150910
  2. AFINITOR [Suspect]
     Active Substance: EVEROLIMUS
     Indication: RENAL CANCER
     Dosage: 10 MG, Q48H
     Route: 048
  3. AFINITOR [Suspect]
     Active Substance: EVEROLIMUS
     Indication: NEUROENDOCRINE TUMOUR

REACTIONS (7)
  - Oral disorder [Unknown]
  - Inappropriate schedule of drug administration [Unknown]
  - Eating disorder [Unknown]
  - Vomiting [Unknown]
  - Nausea [Unknown]
  - Pulmonary oedema [Unknown]
  - Choking [Unknown]

NARRATIVE: CASE EVENT DATE: 20151026
